FAERS Safety Report 23079037 (Version 1)
Quarter: 2023Q4

REPORT INFORMATION
  Report Type: Report from Study
  Country: ES (occurrence: ES)
  Receive Date: 20231018
  Receipt Date: 20231018
  Transmission Date: 20240110
  Serious: Yes (Hospitalization)
  Sender: FDA-Public Use
  Company Number: None

PATIENT
  Age: 47 Year
  Sex: Male

DRUGS (3)
  1. MYCOPHENOLATE MOFETIL [Interacting]
     Active Substance: MYCOPHENOLATE MOFETIL
     Indication: Renal transplant
     Dosage: MICOFENOLATO DE MOFETILO (7330LM)
     Dates: start: 201406, end: 20230514
  2. RAPAMUNE [Interacting]
     Active Substance: SIROLIMUS
     Indication: Renal transplant
     Dosage: 30 TABLETS
     Dates: start: 201406, end: 20230514
  3. PREDNISONE [Concomitant]
     Active Substance: PREDNISONE
     Indication: Renal transplant
     Dosage: PREDNISONA (886A)
     Dates: start: 201406, end: 20230514

REACTIONS (2)
  - Agranulocytosis [Recovered/Resolved]
  - Drug interaction [Unknown]

NARRATIVE: CASE EVENT DATE: 20230509
